FAERS Safety Report 20374627 (Version 5)
Quarter: 2022Q2

REPORT INFORMATION
  Report Type: Report from Study
  Country: FR (occurrence: FR)
  Receive Date: 20220125
  Receipt Date: 20220628
  Transmission Date: 20220721
  Serious: Yes (Hospitalization, Other)
  Sender: FDA-Public Use
  Company Number: FR-TAKEDA-DE201850715

PATIENT
  Age: 56 Year
  Sex: Male

DRUGS (98)
  1. TEDUGLUTIDE [Suspect]
     Active Substance: TEDUGLUTIDE
     Indication: Short-bowel syndrome
     Dosage: 3.4 MILLIGRAM, QD
     Route: 042
     Dates: start: 20160511, end: 20160603
  2. TEDUGLUTIDE [Suspect]
     Active Substance: TEDUGLUTIDE
     Indication: Short-bowel syndrome
     Dosage: 3.4 MILLIGRAM, QD
     Route: 042
     Dates: start: 20160511, end: 20160603
  3. TEDUGLUTIDE [Suspect]
     Active Substance: TEDUGLUTIDE
     Indication: Short-bowel syndrome
     Dosage: 3.4 MILLIGRAM, QD
     Route: 042
     Dates: start: 20160511, end: 20160603
  4. TEDUGLUTIDE [Suspect]
     Active Substance: TEDUGLUTIDE
     Indication: Short-bowel syndrome
     Dosage: 3.4 MILLIGRAM, QD
     Route: 042
     Dates: start: 20160511, end: 20160603
  5. TEDUGLUTIDE [Suspect]
     Active Substance: TEDUGLUTIDE
     Dosage: 3.2 MILLIGRAM, QD
     Route: 042
     Dates: start: 20160603, end: 20160704
  6. TEDUGLUTIDE [Suspect]
     Active Substance: TEDUGLUTIDE
     Dosage: 3.2 MILLIGRAM, QD
     Route: 042
     Dates: start: 20160603, end: 20160704
  7. TEDUGLUTIDE [Suspect]
     Active Substance: TEDUGLUTIDE
     Dosage: 3.2 MILLIGRAM, QD
     Route: 042
     Dates: start: 20160603, end: 20160704
  8. TEDUGLUTIDE [Suspect]
     Active Substance: TEDUGLUTIDE
     Dosage: 3.2 MILLIGRAM, QD
     Route: 042
     Dates: start: 20160603, end: 20160704
  9. TEDUGLUTIDE [Suspect]
     Active Substance: TEDUGLUTIDE
     Dosage: 3 MILLIGRAM, QD
     Route: 042
     Dates: start: 20160704, end: 20160824
  10. TEDUGLUTIDE [Suspect]
     Active Substance: TEDUGLUTIDE
     Dosage: 3 MILLIGRAM, QD
     Route: 042
     Dates: start: 20160704, end: 20160824
  11. TEDUGLUTIDE [Suspect]
     Active Substance: TEDUGLUTIDE
     Dosage: 3 MILLIGRAM, QD
     Route: 042
     Dates: start: 20160704, end: 20160824
  12. TEDUGLUTIDE [Suspect]
     Active Substance: TEDUGLUTIDE
     Dosage: 3 MILLIGRAM, QD
     Route: 042
     Dates: start: 20160704, end: 20160824
  13. TEDUGLUTIDE [Suspect]
     Active Substance: TEDUGLUTIDE
     Dosage: 3.1 MILLIGRAM, QD
     Route: 042
     Dates: start: 20160824, end: 20160920
  14. TEDUGLUTIDE [Suspect]
     Active Substance: TEDUGLUTIDE
     Dosage: 3.1 MILLIGRAM, QD
     Route: 042
     Dates: start: 20160824, end: 20160920
  15. TEDUGLUTIDE [Suspect]
     Active Substance: TEDUGLUTIDE
     Dosage: 3.1 MILLIGRAM, QD
     Route: 042
     Dates: start: 20160824, end: 20160920
  16. TEDUGLUTIDE [Suspect]
     Active Substance: TEDUGLUTIDE
     Dosage: 3.1 MILLIGRAM, QD
     Route: 042
     Dates: start: 20160824, end: 20160920
  17. TEDUGLUTIDE [Suspect]
     Active Substance: TEDUGLUTIDE
     Dosage: 3 MILLIGRAM, QD
     Route: 042
     Dates: start: 20160920, end: 20170328
  18. TEDUGLUTIDE [Suspect]
     Active Substance: TEDUGLUTIDE
     Dosage: 3 MILLIGRAM, QD
     Route: 042
     Dates: start: 20160920, end: 20170328
  19. TEDUGLUTIDE [Suspect]
     Active Substance: TEDUGLUTIDE
     Dosage: 3 MILLIGRAM, QD
     Route: 042
     Dates: start: 20160920, end: 20170328
  20. TEDUGLUTIDE [Suspect]
     Active Substance: TEDUGLUTIDE
     Dosage: 3 MILLIGRAM, QD
     Route: 042
     Dates: start: 20160920, end: 20170328
  21. TEDUGLUTIDE [Suspect]
     Active Substance: TEDUGLUTIDE
     Dosage: 2.8 MILLIGRAM, QD
     Route: 042
     Dates: start: 20170329, end: 20170526
  22. TEDUGLUTIDE [Suspect]
     Active Substance: TEDUGLUTIDE
     Dosage: 2.8 MILLIGRAM, QD
     Route: 042
     Dates: start: 20170329, end: 20170526
  23. TEDUGLUTIDE [Suspect]
     Active Substance: TEDUGLUTIDE
     Dosage: 2.8 MILLIGRAM, QD
     Route: 042
     Dates: start: 20170329, end: 20170526
  24. TEDUGLUTIDE [Suspect]
     Active Substance: TEDUGLUTIDE
     Dosage: 2.8 MILLIGRAM, QD
     Route: 042
     Dates: start: 20170329, end: 20170526
  25. VEDOLIZUMAB [Concomitant]
     Active Substance: VEDOLIZUMAB
     Indication: Crohn^s disease
     Dosage: 300 MILLIGRAM
     Route: 042
     Dates: start: 20190821, end: 20190821
  26. VEDOLIZUMAB [Concomitant]
     Active Substance: VEDOLIZUMAB
     Dosage: 300 MILLIGRAM
     Route: 042
     Dates: start: 20190302, end: 20190502
  27. VEDOLIZUMAB [Concomitant]
     Active Substance: VEDOLIZUMAB
     Dosage: 300 MILLIGRAM
     Route: 042
     Dates: start: 20190626
  28. BISOPROLOL [Concomitant]
     Active Substance: BISOPROLOL
     Indication: Blood pressure increased
     Dosage: 1.25 MILLIGRAM, QD
     Route: 048
     Dates: start: 20190201
  29. BISOPROLOL [Concomitant]
     Active Substance: BISOPROLOL
     Dosage: 1.65 MILLIGRAM, QD
     Route: 048
     Dates: start: 20190201
  30. PLAVIX [Concomitant]
     Active Substance: CLOPIDOGREL BISULFATE
     Indication: Arterial disorder
     Dosage: 76 MILLIGRAM, QD
     Route: 048
     Dates: start: 201304
  31. BISOPROLOL FUMARATE [Concomitant]
     Active Substance: BISOPROLOL FUMARATE
     Indication: Blood pressure increased
     Dosage: 2.60 MILLIGRAM, QD
     Route: 048
     Dates: start: 20140624, end: 20141206
  32. BISOPROLOL FUMARATE [Concomitant]
     Active Substance: BISOPROLOL FUMARATE
     Indication: Myocardial ischaemia
     Dosage: 1.26 MILLIGRAM, QD
     Route: 048
     Dates: start: 20171206
  33. BISOPROLOL FUMARATE [Concomitant]
     Active Substance: BISOPROLOL FUMARATE
     Dosage: 1.26 MILLIGRAM, QD
     Route: 048
     Dates: end: 201403
  34. PANTOPRAZOLE [Concomitant]
     Active Substance: PANTOPRAZOLE
     Indication: Nausea
     Dosage: 20 MILLIGRAM, QD
     Route: 048
     Dates: start: 201307
  35. TAHOR [Concomitant]
     Active Substance: ATORVASTATIN CALCIUM
     Indication: Dyslipidaemia
     Dosage: 40 MILLIGRAM, QD
     Route: 048
     Dates: end: 20170218
  36. TAHOR [Concomitant]
     Active Substance: ATORVASTATIN CALCIUM
     Indication: Hypertension
     Dosage: 40 MILLIGRAM, QD
     Route: 048
     Dates: start: 20180218
  37. VITAMIN B12 [Concomitant]
     Active Substance: CYANOCOBALAMIN
     Indication: Short-bowel syndrome
     Dosage: 1000 MICROGRAM, 1/WEEK
     Route: 048
     Dates: start: 201412, end: 2018
  38. VITAMIN B12 [Concomitant]
     Active Substance: CYANOCOBALAMIN
     Indication: Supplementation therapy
     Dosage: 1 DOSAGE FORM
     Route: 048
     Dates: start: 20190201
  39. SODIUM BICARBONATE [Concomitant]
     Active Substance: SODIUM BICARBONATE
     Indication: Supplementation therapy
     Dosage: 600 MILLIGRAM, TID
     Route: 048
     Dates: end: 201603
  40. SODIUM BICARBONATE [Concomitant]
     Active Substance: SODIUM BICARBONATE
     Dosage: 1 GRAM
     Route: 048
     Dates: start: 2016, end: 2017
  41. FEBUXOSTAT [Concomitant]
     Active Substance: FEBUXOSTAT
     Indication: Hyperuricaemia
     Dosage: 80 MILLIGRAM, QD
     Route: 048
     Dates: start: 20160909
  42. PAROXETINE [Concomitant]
     Active Substance: PAROXETINE
     Indication: Depression
     Dosage: 20 MILLIGRAM
     Route: 048
     Dates: start: 201412
  43. CLOBAZAM [Concomitant]
     Active Substance: CLOBAZAM
     Indication: Depression
     Dosage: 10 MILLIGRAM, TID
     Route: 048
     Dates: start: 20160427
  44. RAMIPRIL [Concomitant]
     Active Substance: RAMIPRIL
     Indication: Hypertension
     Dosage: 1.26 MILLIGRAM, QD
     Route: 048
     Dates: end: 20140204
  45. HYDROCORTISONE [Concomitant]
     Active Substance: HYDROCORTISONE
     Indication: Adrenocorticotropic hormone deficiency
     Dosage: 6 MILLIGRAM, QD
     Route: 048
     Dates: start: 201304, end: 201307
  46. KARDEGIC [Concomitant]
     Active Substance: ASPIRIN DL-LYSINE
     Indication: Arterial disorder
     Dosage: 160 MILLIGRAM, QD
     Route: 048
     Dates: start: 20131104, end: 201402
  47. KARDEGIC [Concomitant]
     Active Substance: ASPIRIN DL-LYSINE
     Indication: Thrombosis
     Dosage: 160 MILLIGRAM, QD
     Route: 042
     Dates: start: 201402, end: 20160427
  48. KARDEGIC [Concomitant]
     Active Substance: ASPIRIN DL-LYSINE
     Dosage: 76 MILLIGRAM, QD
     Route: 048
     Dates: start: 201504, end: 20151104
  49. KARDEGIC [Concomitant]
     Active Substance: ASPIRIN DL-LYSINE
     Dosage: 76 MILLIGRAM, QD
     Route: 048
     Dates: start: 20160427, end: 20161104
  50. KARDEGIC [Concomitant]
     Active Substance: ASPIRIN DL-LYSINE
     Dosage: 76 MILLIGRAM, QD
     Route: 048
     Dates: start: 201706, end: 2017
  51. MAGNESIUM [Concomitant]
     Active Substance: MAGNESIUM
     Indication: Supplementation therapy
     Dosage: 5 DOSAGE FORM, TID
     Route: 048
  52. MAGNESIUM [Concomitant]
     Active Substance: MAGNESIUM
     Dosage: 2 DOSAGE FORM, TID
     Route: 048
     Dates: start: 201706, end: 201706
  53. PHOSPHORUS [Concomitant]
     Active Substance: PHOSPHORUS
     Indication: Supplementation therapy
     Dosage: 20 GTT DROPS, TID
     Route: 048
  54. POTASSIUM CHLORIDE [Concomitant]
     Active Substance: POTASSIUM CHLORIDE
     Indication: Supplementation therapy
     Dosage: 600 MILLIGRAM, QID
     Route: 048
  55. IMOVANE [Concomitant]
     Active Substance: ZOPICLONE
     Indication: Insomnia
     Dosage: 7.60 MILLIGRAM, QD
     Route: 048
  56. LEUCOVORIN CALCIUM [Concomitant]
     Active Substance: LEUCOVORIN CALCIUM
     Indication: Prophylaxis
     Dosage: 6 MILLIGRAM, QD
     Route: 048
     Dates: start: 201307, end: 201307
  57. FERROUS SULFATE [Concomitant]
     Active Substance: FERROUS SULFATE
     Indication: Anaemia
     Dosage: 80 MILLIGRAM, QD
     Route: 048
     Dates: start: 201307
  58. PRISTINAMYCIN [Concomitant]
     Active Substance: PRISTINAMYCIN
     Indication: Subcutaneous abscess
     Dosage: 1 GRAM, TID
     Route: 048
     Dates: start: 201307, end: 201307
  59. IMODIUM [Concomitant]
     Active Substance: LOPERAMIDE HYDROCHLORIDE
     Indication: Short-bowel syndrome
     Dosage: 2 MILLIGRAM
     Route: 048
     Dates: start: 201311
  60. ESOMEPRAZOLE [Concomitant]
     Active Substance: ESOMEPRAZOLE
     Indication: Short-bowel syndrome
     Dosage: 40 MILLIGRAM, QD
     Route: 048
     Dates: start: 20131104, end: 2014
  61. ESOMEPRAZOLE [Concomitant]
     Active Substance: ESOMEPRAZOLE
     Dosage: 20 MILLIGRAM,QD
     Route: 042
     Dates: start: 2014
  62. VITAMIN K [Concomitant]
     Active Substance: PHYTONADIONE
     Indication: Supplementation therapy
     Dosage: 10 MILLIGRAM, 1/WEEK
     Route: 042
     Dates: start: 20131104
  63. OFLOXACIN [Concomitant]
     Active Substance: OFLOXACIN
     Indication: Device related infection
     Dosage: 200 MILLIGRAM, BID
     Route: 048
     Dates: start: 20140120
  64. CEFTAZIDIME [Concomitant]
     Active Substance: CEFTAZIDIME
     Indication: Device related infection
     Dosage: 8 GRAM, QD
     Route: 048
  65. CEFTAZIDIME [Concomitant]
     Active Substance: CEFTAZIDIME
     Dosage: 2 GRAM, TID
     Route: 042
     Dates: start: 20170518, end: 20170519
  66. KAYEXALATE [Concomitant]
     Active Substance: SODIUM POLYSTYRENE SULFONATE
     Indication: Hypercalcaemia
     Dosage: 30 GRAM, TID
     Route: 048
     Dates: start: 201402, end: 20170330
  67. KAYEXALATE [Concomitant]
     Active Substance: SODIUM POLYSTYRENE SULFONATE
     Dosage: 16 GRAM, QD
     Route: 048
     Dates: start: 20180218
  68. GENTAMICIN [Concomitant]
     Active Substance: GENTAMICIN
     Indication: Sepsis
     Dosage: 80 MILLIGRAM, QD
     Route: 042
     Dates: start: 201402, end: 201402
  69. GENTAMICIN [Concomitant]
     Active Substance: GENTAMICIN
     Indication: Infection
     Dosage: 80 MILLIGRAM, QD
     Route: 042
     Dates: start: 20160418, end: 20160420
  70. CEFTRIAXONE SODIUM [Concomitant]
     Active Substance: CEFTRIAXONE SODIUM
     Indication: Sepsis
     Dosage: 2 GRAM, QD
     Route: 042
     Dates: start: 201402, end: 201402
  71. VANCOMYCIN [Concomitant]
     Active Substance: VANCOMYCIN
     Indication: Sepsis
     Dosage: 1 GRAM, QD
     Route: 042
     Dates: start: 201402, end: 201402
  72. VANCOMYCIN [Concomitant]
     Active Substance: VANCOMYCIN
     Indication: Infection
     Dosage: 1 GRAM, BID
     Route: 042
     Dates: start: 20160418, end: 20160502
  73. VANCOMYCIN [Concomitant]
     Active Substance: VANCOMYCIN
     Dosage: 2 GRAM, QD
     Route: 042
     Dates: start: 201703, end: 201703
  74. VANCOMYCIN [Concomitant]
     Active Substance: VANCOMYCIN
     Dosage: 1 GRAM, QD
     Route: 042
     Dates: start: 201703, end: 201703
  75. VANCOMYCIN [Concomitant]
     Active Substance: VANCOMYCIN
     Dosage: 760 MILLIGRAM, BID
     Route: 042
     Dates: start: 20170517, end: 20170519
  76. CHOLECALCIFEROL [Concomitant]
     Active Substance: CHOLECALCIFEROL
     Dosage: 40000 INTERNATIONAL UNIT
     Route: 048
     Dates: start: 201402, end: 201405
  77. CHOLECALCIFEROL [Concomitant]
     Active Substance: CHOLECALCIFEROL
     Dosage: 80000 INTERNATIONAL UNIT
     Route: 048
     Dates: start: 20180218
  78. ALBUTEROL [Concomitant]
     Active Substance: ALBUTEROL
     Dosage: 1.26 MILLIGRAM, TID
     Route: 048
     Dates: start: 201405
  79. RAMIPRIL [Concomitant]
     Active Substance: RAMIPRIL
     Indication: Blood pressure increased
     Dosage: 1.26 MILLIGRAM, QD
     Route: 048
     Dates: start: 20140624
  80. Cacit [Concomitant]
     Dosage: 600 MILLIGRAM, BID
     Route: 048
     Dates: start: 201412
  81. RIFAMPIN [Concomitant]
     Active Substance: RIFAMPIN
     Dosage: 600 MILLIGRAM, BID
     Route: 042
     Dates: start: 20160418, end: 20160502
  82. POTASSIUM [Concomitant]
     Active Substance: POTASSIUM
     Indication: Hypocalcaemia
     Dosage: 2 MILLIGRAM, QD
     Route: 042
     Dates: start: 20170331
  83. CYANOCOBALAMIN\PYRIDOXINE\THIAMINE [Concomitant]
     Active Substance: CYANOCOBALAMIN\PYRIDOXINE\THIAMINE
     Indication: Supplementation therapy
     Dosage: 2 DOSAGE FORM, TID
     Route: 048
     Dates: start: 2017, end: 201706
  84. CYANOCOBALAMIN\PYRIDOXINE\THIAMINE [Concomitant]
     Active Substance: CYANOCOBALAMIN\PYRIDOXINE\THIAMINE
     Dosage: 260 MILLIGRAM, QD
     Route: 048
     Dates: start: 20180218, end: 2018
  85. DAPTOMYCIN [Concomitant]
     Active Substance: DAPTOMYCIN
     Indication: Infection
     Dosage: 600 MILLIGRAM, QD
     Route: 042
     Dates: start: 20170519, end: 20170527
  86. PIPERACILLIN [Concomitant]
     Active Substance: PIPERACILLIN
     Indication: Infection
     Dosage: 4 GRAM, TID
     Route: 042
     Dates: start: 20170519, end: 20170531
  87. THIAMINE [Concomitant]
     Active Substance: THIAMINE
     Dosage: 260 MILLIGRAM, BID
     Route: 048
     Dates: start: 201706, end: 2017
  88. LOVENOX [Concomitant]
     Active Substance: ENOXAPARIN SODIUM
     Indication: Brachiocephalic vein thrombosis
     Dosage: 4000 INTERNATIONAL UNIT, QD
     Route: 058
     Dates: start: 201706
  89. LOVENOX [Concomitant]
     Active Substance: ENOXAPARIN SODIUM
     Dosage: 6000 INTERNATIONAL UNIT, QD
     Route: 048
     Dates: start: 20180218, end: 2018
  90. FERINJECT [Concomitant]
     Active Substance: FERRIC CARBOXYMALTOSE
     Indication: Anaemia
     Dosage: 1 GRAM, QD
     Route: 042
     Dates: start: 20171114, end: 20171114
  91. Calcidose [Concomitant]
     Indication: Vitamin D deficiency
     Dosage: UNK, TID
     Route: 048
     Dates: start: 20171206
  92. FOLIC ACID [Concomitant]
     Active Substance: FOLIC ACID
     Dosage: 6 MILLIGRAM, QD
     Route: 048
     Dates: start: 20180218
  93. WARFARIN SODIUM [Concomitant]
     Active Substance: WARFARIN SODIUM
     Dosage: 2 MILLIGRAM, QD
     Route: 048
     Dates: start: 20180218
  94. PAROXETINE HYDROCHLORIDE [Concomitant]
     Active Substance: PAROXETINE HYDROCHLORIDE
     Indication: Depression
     Dosage: 20 MILLIGRAM, QD
     Route: 048
     Dates: start: 20180218, end: 2018
  95. CEFAZOLIN [Concomitant]
     Active Substance: CEFAZOLIN
     Indication: Sepsis
     Dosage: 1.60 MILLIGRAM, QD
     Route: 042
     Dates: start: 20180212, end: 20180311
  96. CEFAZOLIN [Concomitant]
     Active Substance: CEFAZOLIN
     Indication: Hyperthermia
  97. CEFAZOLIN [Concomitant]
     Active Substance: CEFAZOLIN
     Indication: Infection
  98. ALBUMIN HUMAN [Concomitant]
     Active Substance: ALBUMIN HUMAN
     Indication: Hypoalbuminaemia
     Dosage: 20 GRAM, QD
     Route: 050
     Dates: start: 20180112, end: 20180114

REACTIONS (4)
  - Pancreatitis chronic [Recovered/Resolved]
  - Pulmonary arterial pressure increased [Recovered/Resolved]
  - Brachiocephalic vein thrombosis [Recovered/Resolved]
  - Anaemia [Recovered/Resolved]

NARRATIVE: CASE EVENT DATE: 20170601
